FAERS Safety Report 19183347 (Version 1)
Quarter: 2021Q2

REPORT INFORMATION
  Report Type: Report from Study
  Country: DE (occurrence: DE)
  Receive Date: 20210427
  Receipt Date: 20210427
  Transmission Date: 20210717
  Serious: Yes (Life-Threatening, Other)
  Sender: FDA-Public Use
  Company Number: DE-AUROBINDO-AUR-APL-2021-016376

PATIENT
  Age: 60 Year
  Sex: Female

DRUGS (5)
  1. PANTOPRAZOLE [Suspect]
     Active Substance: PANTOPRAZOLE
     Indication: NEOPLASM MALIGNANT
     Dosage: 40 MILLIGRAM, 1 TOTAL, ONCE/SINGLE
     Route: 042
  2. METHOTREXATE. [Interacting]
     Active Substance: METHOTREXATE
     Indication: NEOPLASM MALIGNANT
     Dosage: UNK (HIGH?DOSE METHOTREXATE INFUSION IN CYCLES)
     Route: 065
  3. METHOTREXATE. [Interacting]
     Active Substance: METHOTREXATE
     Dosage: 2.7 GRAM, CYCLICAL, (2.7 G/M2, (HIGH DOSE) CYCLIC)
     Route: 041
  4. FOLINIC ACID [Concomitant]
     Active Substance: LEUCOVORIN
     Indication: PRODUCT USED FOR UNKNOWN INDICATION
     Dosage: UNK
     Route: 065
  5. SODIUM BICARBONATE. [Concomitant]
     Active Substance: SODIUM BICARBONATE
     Indication: URINE ALKALINISATION THERAPY
     Dosage: UNK
     Route: 065

REACTIONS (2)
  - Acute kidney injury [Unknown]
  - Drug interaction [Unknown]
